FAERS Safety Report 5960209-2 (Version None)
Quarter: 2008Q4

REPORT INFORMATION
  Report Type: 
  Country: None (occurrence: None)
  Receive Date: 20081120
  Receipt Date: 20081112
  Transmission Date: 20090506
  Serious: Yes (Other)
  Sender: FDA-Public Use
  Company Number: US-ASTRAZENECA-2008UW25270

PATIENT
  Age: 43 Year
  Sex: Male
  Weight: 117.9 kg

DRUGS (2)
  1. CRESTOR [Suspect]
     Dosage: 40 MG
     Route: 048
  2. CRESTOR [Suspect]
     Dosage: 20 MG
     Route: 048

REACTIONS (3)
  - IMPAIRED HEALING [None]
  - MUSCLE SPASMS [None]
  - RHABDOMYOLYSIS [None]
